FAERS Safety Report 5483393-6 (Version None)
Quarter: 2007Q4

REPORT INFORMATION
  Report Type: 
  Country: None (occurrence: None)
  Receive Date: 20071012
  Receipt Date: 20071001
  Transmission Date: 20080405
  Serious: Yes (Other)
  Sender: FDA-Public Use
  Company Number: FR-TYCO HEALTHCARE/MALLINCKRODT-T200701192

PATIENT

DRUGS (1)
  1. HEXABRIX [Suspect]
     Indication: ARTHROGRAM
     Dates: start: 20070917, end: 20070917

REACTIONS (3)
  - EYE IRRITATION [None]
  - FACE OEDEMA [None]
  - RHINITIS [None]
